FAERS Safety Report 17823949 (Version 1)
Quarter: 2020Q2

REPORT INFORMATION
  Report Type: Spontaneous
  Country: CN (occurrence: CN)
  Receive Date: 20200526
  Receipt Date: 20200526
  Transmission Date: 20200714
  Serious: Yes (Hospitalization)
  Sender: FDA-Public Use
  Company Number: CN-B.I. PHARMACEUTICALS,INC./RIDGEFIELD-2020-BI-024933

PATIENT
  Age: 57 Year
  Sex: Male

DRUGS (1)
  1. GILOTRIF [Suspect]
     Active Substance: AFATINIB
     Indication: CHEMOTHERAPY
     Route: 048
     Dates: start: 20200429, end: 20200509

REACTIONS (4)
  - Thrombocytopenia [Unknown]
  - Blood albumin decreased [Unknown]
  - Hepatic function abnormal [Unknown]
  - Leukopenia [Unknown]

NARRATIVE: CASE EVENT DATE: 20200501
